FAERS Safety Report 4789698-6 (Version None)
Quarter: 2005Q4

REPORT INFORMATION
  Report Type: 
  Country: None (occurrence: None)
  Receive Date: 20051004
  Receipt Date: 20051004
  Transmission Date: 20060501
  Serious: Yes (Hospitalization)
  Sender: FDA-Public Use
  Company Number: None

PATIENT
  Sex: Male
  Weight: 63.6 kg

DRUGS (9)
  1. IMMUNE GLOBULIN INTRAVENOUS (HUMAN) [Suspect]
     Indication: IDIOPATHIC THROMBOCYTOPENIC PURPURA
     Dosage: 60 GM IV DAILY
     Route: 042
     Dates: start: 20050520, end: 20050521
  2. LABETALOL [Concomitant]
  3. AMLODIPINE [Concomitant]
  4. CLONIDINE [Concomitant]
  5. LEVOTHYROXINE [Concomitant]
  6. LANSOPRAZOLE [Concomitant]
  7. LOW DOSE SSS [Concomitant]
  8. METHYLPREDNISOLONE [Concomitant]
  9. PREDNISONE [Concomitant]

REACTIONS (3)
  - CHEST DISCOMFORT [None]
  - INFUSION RELATED REACTION [None]
  - OXYGEN SATURATION DECREASED [None]
